FAERS Safety Report 20362398 (Version 1)
Quarter: 2022Q1

REPORT INFORMATION
  Report Type: Spontaneous
  Country: US (occurrence: None)
  Receive Date: 20220120
  Receipt Date: 20220120
  Transmission Date: 20220423
  Serious: Yes (Life-Threatening)
  Sender: FDA-Public Use
  Company Number: None

PATIENT
  Age: 80 Year
  Sex: Male
  Weight: 96 kg

DRUGS (3)
  1. BROMOCRIPTINE [Suspect]
     Active Substance: BROMOCRIPTINE
     Indication: Neuroleptic malignant syndrome
     Dosage: FREQUENCY : TWICE A DAY;?
     Route: 048
     Dates: start: 20211206, end: 20211210
  2. ERYTHROMYCIN [Suspect]
     Active Substance: ERYTHROMYCIN
     Indication: Product used for unknown indication
     Dosage: FREQUENCY : 3 TIMES A DAY;?
     Route: 040
     Dates: start: 20211204, end: 20211210
  3. metoprolol 12.5 FT BID [Concomitant]
     Dates: start: 20211207, end: 20211209

REACTIONS (6)
  - Sepsis [None]
  - Pneumonia aspiration [None]
  - Neuroleptic malignant syndrome [None]
  - Bradycardia [None]
  - Pulseless electrical activity [None]
  - Drug interaction [None]

NARRATIVE: CASE EVENT DATE: 20211209
